FAERS Safety Report 10961620 (Version 1)
Quarter: 2015Q1

REPORT INFORMATION
  Report Type: Spontaneous
  Country: JP (occurrence: None)
  Receive Date: 20150325
  Receipt Date: 20150325
  Transmission Date: 20150721
  Serious: Yes (Life-Threatening)
  Sender: FDA-Public Use
  Company Number: FK201501324

PATIENT
  Age: 72 Year
  Sex: Male

DRUGS (5)
  1. ROCURONIUM BROMIDE. [Concomitant]
     Active Substance: ROCURONIUM BROMIDE
  2. SEVOFLURANE. [Concomitant]
     Active Substance: SEVOFLURANE
  3. PROPOFOL. [Suspect]
     Active Substance: PROPOFOL
     Indication: GENERAL ANAESTHESIA
     Dosage: 1 IN 1 D
     Route: 042
  4. LIDOCAINE. [Concomitant]
     Active Substance: LIDOCAINE
  5. REMIFENTANIL [Concomitant]
     Active Substance: REMIFENTANIL

REACTIONS (8)
  - Anaesthetic complication [None]
  - Atrioventricular block first degree [None]
  - Electrocardiogram J wave abnormal [None]
  - Cardiac arrest [None]
  - Ventricular fibrillation [None]
  - Electrocardiogram ST segment elevation [None]
  - Brugada syndrome [None]
  - Ventricular tachycardia [None]
